FAERS Safety Report 21230285 (Version 1)
Quarter: 2022Q3

REPORT INFORMATION
  Report Type: Spontaneous
  Country: US (occurrence: US)
  Receive Date: 20220818
  Receipt Date: 20220818
  Transmission Date: 20221027
  Serious: No
  Sender: FDA-Public Use
  Company Number: US-JNJFOC-20220831383

PATIENT
  Sex: Male

DRUGS (1)
  1. PEPCID AC MAXIMUM STRENGTH [Suspect]
     Active Substance: FAMOTIDINE
     Indication: Product used for unknown indication
     Dosage: CUT THE PILLS IN HALF AND TAKE IT EVERY MORNING; 1 OR 2 ONCE DAILY
     Route: 065

REACTIONS (1)
  - Wrong technique in product usage process [Unknown]
